FAERS Safety Report 19441217 (Version 1)
Quarter: 2021Q2

REPORT INFORMATION
  Report Type: Spontaneous
  Country: US (occurrence: US)
  Receive Date: 20210617
  Receipt Date: 20210617
  Transmission Date: 20210717
  Serious: Yes (Other)
  Sender: FDA-Public Use
  Company Number: None

PATIENT
  Age: 43 Year
  Sex: Female

DRUGS (16)
  1. LEVOTHYROXINE SODIUM 100 MCG TAB LUPI [Suspect]
     Active Substance: LEVOTHYROXINE SODIUM
     Indication: HYPOTHYROIDISM
     Dosage: ?          QUANTITY:1 TABLET(S);?
     Route: 048
     Dates: start: 20041201
  2. LIVER [Concomitant]
     Active Substance: MAMMAL LIVER
  3. BIOTIN [Concomitant]
     Active Substance: BIOTIN
  4. SELENIUM. [Concomitant]
     Active Substance: SELENIUM
  5. VITAMINS [Concomitant]
     Active Substance: VITAMINS
  6. HOMEMADE BEEF BONE BROTH AND GELATIN [Concomitant]
  7. MG GLYCINE + B6 + MGC FOODS [Concomitant]
  8. WHEY PROTEIN POWDER [Concomitant]
  9. MGS04 [Concomitant]
  10. EGGS [Concomitant]
     Active Substance: EGG
  11. FE GLYCINE [Concomitant]
  12. MY LOTION [Concomitant]
  13. ZC [Concomitant]
  14. NO SOY/DERIVATIVES [Concomitant]
  15. FOLIC ACID. [Concomitant]
     Active Substance: FOLIC ACID
  16. IND B^S [Concomitant]

REACTIONS (4)
  - Biotin deficiency [None]
  - Fatigue [None]
  - Anaemia [None]
  - Blood albumin decreased [None]

NARRATIVE: CASE EVENT DATE: 20111201
